FAERS Safety Report 4337748-3 (Version None)
Quarter: 2004Q2

REPORT INFORMATION
  Report Type: 
  Country: None (occurrence: None)
  Receive Date: 20040408
  Receipt Date: 20040331
  Transmission Date: 20050107
  Serious: No
  Sender: FDA-Public Use
  Company Number: 2004AP02046

PATIENT
  Age: 43 Year
  Sex: Female

DRUGS (6)
  1. NOLVADEX [Suspect]
     Indication: BREAST CANCER
     Dates: start: 20030714, end: 20030901
  2. NOLVADEX [Suspect]
     Indication: BREAST CANCER
     Dosage: 20 MG DAILY PO
     Route: 048
     Dates: start: 20040223
  3. CYCLOPHOSPHAMIDE [Concomitant]
  4. FARMORUBICIN [Concomitant]
  5. FLUOROURACIL [Concomitant]
  6. ZOLADEX [Concomitant]

REACTIONS (2)
  - BLINDNESS TRANSIENT [None]
  - CORNEAL OEDEMA [None]
